FAERS Safety Report 5587726-1 (Version None)
Quarter: 2007Q4

REPORT INFORMATION
  Report Type: 
  Country: None (occurrence: None)
  Receive Date: 20071207
  Receipt Date: 20070319
  Transmission Date: 20080405
  Serious: Yes (Other)
  Sender: FDA-Public Use
  Company Number: 35334

PATIENT
  Age: 60 Year
  Sex: Female
  Weight: 74 kg

DRUGS (12)
  1. CYCLOSPORINE [Suspect]
     Indication: ALLOGENIC BONE MARROW TRANSPLANTATION THERAPY
     Dosage: 264MG OVER 24 HOURS CONTINUOUSL
  2. ACYCLOVIR [Concomitant]
  3. ANZEMET [Concomitant]
  4. METHLPREDNISOLONE [Concomitant]
  5. METHYLPHENIDATE HCL [Concomitant]
  6. MIRTAZAPINE [Concomitant]
  7. NIFEDIPINE [Concomitant]
  8. PANTOPRAZOLE [Concomitant]
  9. POSACONAZOLE [Concomitant]
  10. ELECTROLYTE REPLACEMENT [Concomitant]
  11. SENNA [Concomitant]
  12. BACTRIM DS [Concomitant]

REACTIONS (1)
  - DRUG INEFFECTIVE [None]
